FAERS Safety Report 7221744-2 (Version None)
Quarter: 2011Q1

REPORT INFORMATION
  Report Type: 
  Country: None (occurrence: None)
  Receive Date: 20110112
  Receipt Date: 20110106
  Transmission Date: 20110831
  Serious: Yes (Death)
  Sender: FDA-Public Use
  Company Number: US-JNJFOC-20110101891

PATIENT
  Age: 61 Year
  Sex: Male

DRUGS (8)
  1. DOXAZOSIN [Suspect]
     Indication: SUICIDE ATTEMPT
     Route: 048
  2. MIRTAZAPINE [Suspect]
     Indication: SUICIDE ATTEMPT
     Route: 048
  3. BENZTROPINE [Suspect]
     Indication: SUICIDE ATTEMPT
     Route: 048
  4. BENZONATATE [Suspect]
     Indication: SUICIDE ATTEMPT
     Route: 048
  5. TEMAZEPAM [Suspect]
     Indication: SUICIDE ATTEMPT
     Route: 048
  6. LORAZEPAM [Suspect]
     Indication: SUICIDE ATTEMPT
     Route: 048
  7. RISPERIDONE [Suspect]
     Indication: SUICIDE ATTEMPT
     Route: 048
  8. LISINOPRIL [Suspect]
     Indication: SUICIDE ATTEMPT
     Route: 048

REACTIONS (1)
  - TOXICITY TO VARIOUS AGENTS [None]
